FAERS Safety Report 9516929 (Version 1)
Quarter: 2013Q1

REPORT INFORMATION
  Report Type: Spontaneous
  Country: US (occurrence: None)
  Receive Date: 20130305
  Receipt Date: 20130305
  Transmission Date: 20140127
  Serious: Yes (Hospitalization)
  Sender: FDA-Public Use
  Company Number: 163-21880-12011156

PATIENT
  Sex: 0

DRUGS (8)
  1. REVLIMID (LENALIDOMIDE) [Suspect]
     Indication: PLASMA CELL MYELOMA
     Route: 048
     Dates: start: 20111228
  2. ARICEPT (DONEPEZIL) [Concomitant]
  3. NAMENDA (MEMANTINE HYDROCHLORIDE) [Concomitant]
  4. PREDNISONE (PREDNISONE) [Concomitant]
  5. SEROQUEL (QUETIAPINE FUMARATE) [Concomitant]
  6. CENTRUM SILVER [Concomitant]
  7. BATER BACK AND BODY PAIN EXTRA STRENGTH (NIMESULIDE) [Concomitant]
  8. VELCADE (BORTEZOMIB) [Concomitant]

REACTIONS (2)
  - White blood cell count decreased [None]
  - Urinary tract infection [None]
